FAERS Safety Report 14538774 (Version 2)
Quarter: 2018Q1

REPORT INFORMATION
  Report Type: Report from Study
  Country: US (occurrence: US)
  Receive Date: 20180216
  Receipt Date: 20180327
  Transmission Date: 20180509
  Serious: Yes (Hospitalization)
  Sender: FDA-Public Use
  Company Number: US-AMGEN-USASP2018019388

PATIENT
  Age: 22 Year
  Sex: Male

DRUGS (17)
  1. BLINCYTO [Suspect]
     Active Substance: BLINATUMOMAB
     Indication: ACUTE LYMPHOCYTIC LEUKAEMIA
     Dosage: 28 MUG, UNK
     Route: 042
     Dates: start: 20180105
  2. ALLOPURINOL. [Concomitant]
     Active Substance: ALLOPURINOL
     Dosage: 300 MG, QD
  3. BENADRYL [Concomitant]
     Active Substance: DIPHENHYDRAMINE HYDROCHLORIDE
     Dosage: UNK UNK, (12.5 - 50 MG THREE TIMES DAILY AS NEEDED) TID
  4. OXYCODONE [Concomitant]
     Active Substance: OXYCODONE
     Dosage: UNK (5 TO 10 MG EVERY 4 HOURS AS NEEDED)
  5. VITAMIN D3 [Concomitant]
     Active Substance: CHOLECALCIFEROL
     Dosage: 5000 UNIT, QD
  6. CYTOXAN [Concomitant]
     Active Substance: CYCLOPHOSPHAMIDE
     Dosage: UNK
  7. BACTRIM DS [Concomitant]
     Active Substance: SULFAMETHOXAZOLE\TRIMETHOPRIM
     Dosage: UNK (1 TABLET TWICE DAILY FOR 2 DAYS PER WEEK)
  8. ACYCLOVIR. [Concomitant]
     Active Substance: ACYCLOVIR
     Dosage: 400 MG, BID
  9. ALBUTEROL. [Concomitant]
     Active Substance: ALBUTEROL
     Dosage: 2 DF, Q6H (2 PUFFS EVERY 6 HOURS AS NEEDED)
  10. LEVAQUIN [Concomitant]
     Active Substance: LEVOFLOXACIN
     Dosage: 500 MG, QD
  11. LORAZEPAM. [Concomitant]
     Active Substance: LORAZEPAM
     Dosage: 0.5 MG, (EVERY 6 HOURS AS NEEDED)
  12. MULTIVITAMIN [Concomitant]
     Active Substance: VITAMINS
     Dosage: UNK UNK, BID
  13. FOLIC ACID. [Concomitant]
     Active Substance: FOLIC ACID
     Dosage: 1 MG, QD
  14. MONTELUKAST [Concomitant]
     Active Substance: MONTELUKAST SODIUM
     Dosage: 10 MG, QD
  15. PROCHLORPERAZINE. [Concomitant]
     Active Substance: PROCHLORPERAZINE
     Dosage: 10 MG, Q6H (AS NEEDED)
  16. DOCUSATE [Concomitant]
     Active Substance: DOCUSATE
     Dosage: 100 MG, BID
  17. FLUCONAZOLE. [Concomitant]
     Active Substance: FLUCONAZOLE
     Dosage: 400 MG, QD

REACTIONS (1)
  - Splenomegaly [Recovered/Resolved]

NARRATIVE: CASE EVENT DATE: 201801
